FAERS Safety Report 10246353 (Version 2)
Quarter: 2014Q3

REPORT INFORMATION
  Report Type: Spontaneous
  Country: KR (occurrence: KR)
  Receive Date: 20140619
  Receipt Date: 20140716
  Transmission Date: 20150326
  Serious: Yes (Hospitalization)
  Sender: FDA-Public Use
  Company Number: PHHY2014KR075365

PATIENT
  Age: 61 Year
  Sex: Male

DRUGS (1)
  1. EVEROLIMUS [Suspect]
     Active Substance: EVEROLIMUS
     Indication: METASTATIC RENAL CELL CARCINOMA
     Dosage: 10 MG, QD

REACTIONS (10)
  - Asthenia [Not Recovered/Not Resolved]
  - Tongue dry [Unknown]
  - Polyuria [Not Recovered/Not Resolved]
  - Dizziness [Unknown]
  - Skin turgor decreased [Unknown]
  - Hyperglycaemia [Unknown]
  - Weight decreased [Not Recovered/Not Resolved]
  - Sinus tachycardia [Unknown]
  - Diabetic ketoacidosis [Unknown]
  - Thirst [Not Recovered/Not Resolved]
